FAERS Safety Report 13337492 (Version 2)
Quarter: 2017Q1

REPORT INFORMATION
  Report Type: Spontaneous
  Country: FR (occurrence: FR)
  Receive Date: 20170315
  Receipt Date: 20170317
  Transmission Date: 20170428
  Serious: Yes (Hospitalization, Other)
  Sender: FDA-Public Use
  Company Number: FR-009507513-1703FRA006194

PATIENT
  Sex: Male

DRUGS (1)
  1. JANUVIA [Suspect]
     Active Substance: SITAGLIPTIN PHOSPHATE
     Indication: TYPE 2 DIABETES MELLITUS
     Dosage: UNK
     Route: 048
     Dates: end: 20170307

REACTIONS (5)
  - Malaise [Unknown]
  - Lipase increased [Unknown]
  - Pancreatitis [Unknown]
  - Gamma-glutamyltransferase increased [Unknown]
  - Drug-induced liver injury [Unknown]
